FAERS Safety Report 10230507 (Version 4)
Quarter: 2014Q3

REPORT INFORMATION
  Report Type: Spontaneous
  Country: US (occurrence: US)
  Receive Date: 20140611
  Receipt Date: 20140910
  Transmission Date: 20150326
  Serious: Yes (Other)
  Sender: FDA-Public Use
  Company Number: US-INCYTE CORPORATION-2014IN001053

PATIENT
  Age: 71 Year
  Sex: Female
  Weight: 63.95 kg

DRUGS (6)
  1. GLEEVEC [Suspect]
     Active Substance: IMATINIB MESYLATE
     Indication: CHRONIC MYELOID LEUKAEMIA
     Dosage: 200 MG, QD
     Dates: start: 201404
  2. JAKAFI [Suspect]
     Active Substance: RUXOLITINIB
     Indication: MYELOFIBROSIS
     Dosage: 20 MG, BID
     Route: 048
  3. JAKAFI [Suspect]
     Active Substance: RUXOLITINIB
     Dosage: 10 MG, BID
     Route: 048
     Dates: start: 201201, end: 201404
  4. SYNTHROID [Concomitant]
     Active Substance: LEVOTHYROXINE SODIUM
  5. LOVENOX [Suspect]
     Active Substance: ENOXAPARIN SODIUM
     Indication: DEEP VEIN THROMBOSIS
  6. GLEEVEC [Suspect]
     Active Substance: IMATINIB MESYLATE
     Dosage: 400 MG, QD

REACTIONS (13)
  - Paranasal sinus hypersecretion [Unknown]
  - Cough [Unknown]
  - Paranasal sinus discomfort [Unknown]
  - Injection site haematoma [Unknown]
  - Fatigue [Unknown]
  - Migraine [Unknown]
  - Muscle spasms [Recovered/Resolved]
  - Increased tendency to bruise [Unknown]
  - Chronic myeloid leukaemia [Unknown]
  - Deep vein thrombosis [Unknown]
  - Dyspnoea exertional [Unknown]
  - Blood thyroid stimulating hormone increased [Unknown]
  - Visual impairment [Unknown]

NARRATIVE: CASE EVENT DATE: 201402
